FAERS Safety Report 9222197 (Version 1)
Quarter: 2013Q2

REPORT INFORMATION
  Report Type: Spontaneous
  Country: US (occurrence: None)
  Receive Date: 20130408
  Receipt Date: 20130408
  Transmission Date: 20140414
  Serious: Yes (Death)
  Sender: FDA-Public Use
  Company Number: 2013-US-0116

PATIENT
  Age: 53 Year
  Sex: Male

DRUGS (4)
  1. ABSTRAL [Suspect]
     Indication: BREAKTHROUGH PAIN
     Route: 060
  2. FENTANYL (FENTANYL) [Concomitant]
  3. METHADONE [Concomitant]
  4. MORPHINE [Concomitant]

REACTIONS (1)
  - Death [None]
